FAERS Safety Report 6591412-9 (Version None)
Quarter: 2010Q1

REPORT INFORMATION
  Report Type: 
  Country: None (occurrence: None)
  Receive Date: 20100219
  Receipt Date: 20100210
  Transmission Date: 20100710
  Serious: Yes (Other)
  Sender: FDA-Public Use
  Company Number: US-WATSON-2009-10591

PATIENT

DRUGS (7)
  1. FENTANYL-25 [Suspect]
     Indication: MUSCULOSKELETAL PAIN
     Dosage: 1 PATCH, SINGLE AT NIGHT
     Route: 062
     Dates: start: 20091118, end: 20091119
  2. TRILEPTAL [Concomitant]
     Indication: BIPOLAR DISORDER
     Dosage: 5 TABLET, DAILY (2 TABLETS QAM, 3 TABLETS QPM)
     Route: 048
     Dates: start: 20080101
  3. TRILEPTAL [Concomitant]
     Indication: POST-TRAUMATIC STRESS DISORDER
  4. TRILEPTAL [Concomitant]
     Indication: SCHIZOPHRENIA
  5. ZOLOFT [Concomitant]
     Indication: BIPOLAR DISORDER
     Dosage: 150 MG, DAILY (50 MG QAM AND 100 MG QPM)
     Route: 048
     Dates: start: 20080101
  6. ZYPREXA [Concomitant]
     Indication: BIPOLAR DISORDER
     Dosage: 5MG, QPM
     Route: 048
     Dates: start: 20080101
  7. VALIUM [Concomitant]
     Indication: DRUG USE FOR UNKNOWN INDICATION
     Dosage: 5 MG, PRN
     Route: 065

REACTIONS (10)
  - CHILLS [None]
  - DYSARTHRIA [None]
  - DYSPNOEA [None]
  - FALL [None]
  - FATIGUE [None]
  - FEELING COLD [None]
  - INCOHERENT [None]
  - MEMORY IMPAIRMENT [None]
  - RESPIRATORY ARREST [None]
  - RESPIRATORY DISTRESS [None]
